FAERS Safety Report 5677285-7 (Version None)
Quarter: 2008Q1

REPORT INFORMATION
  Report Type: 
  Country: None (occurrence: None)
  Receive Date: 20080320
  Receipt Date: 20080320
  Transmission Date: 20080703
  Serious: No
  Sender: FDA-Public Use
  Company Number: None

PATIENT
  Sex: Male

DRUGS (2)
  1. ZOFRAN [Suspect]
  2. OXYCODONE HCL EXTENDED-RELEASE [Suspect]

REACTIONS (12)
  - DYSPNOEA [None]
  - EAR DISCOMFORT [None]
  - EYELID FUNCTION DISORDER [None]
  - FLAT AFFECT [None]
  - FLUSHING [None]
  - HYPERSENSITIVITY [None]
  - ILL-DEFINED DISORDER [None]
  - MOVEMENT DISORDER [None]
  - NAUSEA [None]
  - PARALYSIS [None]
  - SPEECH DISORDER [None]
  - TACHYCARDIA [None]
